FAERS Safety Report 13671092 (Version 1)
Quarter: 2017Q2

REPORT INFORMATION
  Report Type: Spontaneous
  Country: US (occurrence: US)
  Receive Date: 20170620
  Receipt Date: 20170620
  Transmission Date: 20170830
  Serious: No
  Sender: FDA-Public Use
  Company Number: US-ROCHE-1303909

PATIENT
  Sex: Female

DRUGS (1)
  1. XELODA [Suspect]
     Active Substance: CAPECITABINE
     Indication: COLON CANCER
     Dosage: 1500 MG IN MORNING (AM) AND 2000 MG IN EVENING (PM) 14 DAY ON 7 DAY OFF.
     Route: 065
     Dates: start: 20130907

REACTIONS (1)
  - Nausea [Unknown]
